FAERS Safety Report 10276721 (Version 2)
Quarter: 2015Q4

REPORT INFORMATION
  Report Type: Spontaneous
  Country: US (occurrence: US)
  Receive Date: 20140703
  Receipt Date: 20151215
  Transmission Date: 20160304
  Serious: Yes (Hospitalization, Other)
  Sender: FDA-Public Use
  Company Number: US-BAYER-2014-100320

PATIENT
  Age: 45 Year
  Sex: Female
  Weight: 66.21 kg

DRUGS (4)
  1. YASMIN [Suspect]
     Active Substance: DROSPIRENONE\ETHINYL ESTRADIOL
  2. ALTACE [Concomitant]
     Active Substance: RAMIPRIL
  3. ASPIRIN. [Concomitant]
     Active Substance: ASPIRIN
  4. ATORVASTATIN [Concomitant]
     Active Substance: ATORVASTATIN

REACTIONS (2)
  - Embolism arterial [None]
  - Cerebrovascular accident [None]

NARRATIVE: CASE EVENT DATE: 20070623
